FAERS Safety Report 9096671 (Version 1)
Quarter: 2013Q1

REPORT INFORMATION
  Report Type: Report from Study
  Country: KR (occurrence: KR)
  Receive Date: 20130211
  Receipt Date: 20130211
  Transmission Date: 20140127
  Serious: Yes (Hospitalization)
  Sender: FDA-Public Use
  Company Number: PHHO2012KR015109

PATIENT
  Age: 55 Year
  Sex: Female
  Weight: 59 kg

DRUGS (9)
  1. AFINITOR [Suspect]
     Indication: T-CELL LYMPHOMA
     Dosage: 2.5 MG, BID
     Route: 048
     Dates: start: 20121002, end: 20121010
  2. AFINITOR [Suspect]
     Dosage: 2.5 MG, BID
     Route: 048
     Dates: end: 20130128
  3. CHLORPHENAMINE [Concomitant]
     Indication: URTICARIA
     Dosage: 6 MG, TID
     Route: 042
     Dates: start: 20120921, end: 20121015
  4. LIDOCAINE HYDROCHLORIDE [Concomitant]
     Indication: MUCOSAL INFLAMMATION
     Dosage: 20 ML, BID
     Route: 048
     Dates: start: 20121010
  5. HYDROXYZINE [Concomitant]
     Indication: URTICARIA
     Dosage: 75 MG, TID
     Dates: start: 20121001, end: 20121011
  6. FAMOTIDINE [Concomitant]
     Indication: PROPHYLAXIS
     Dosage: 40 MG, BID
     Dates: start: 20120921
  7. ACETAMINOPHEN [Concomitant]
     Indication: PAIN PROPHYLAXIS
     Dosage: 1950 MG, TID
     Route: 048
     Dates: start: 20120930, end: 20121011
  8. BENZYDAMINE [Concomitant]
     Indication: MUCOSAL INFLAMMATION
     Dosage: 99 ML, PRN
     Dates: start: 20121008
  9. MEROPENEM [Concomitant]
     Indication: PROPHYLAXIS
     Dosage: 3000 MG, TID
     Route: 042
     Dates: start: 20121011

REACTIONS (2)
  - Febrile neutropenia [Recovered/Resolved]
  - Neutropenia [Recovered/Resolved]
